FAERS Safety Report 21376245 (Version 1)
Quarter: 2022Q3

REPORT INFORMATION
  Report Type: Report from Study
  Country: FR (occurrence: FR)
  Receive Date: 20220926
  Receipt Date: 20220926
  Transmission Date: 20221027
  Serious: Yes (Hospitalization)
  Sender: FDA-Public Use
  Company Number: FR-SA-SAC20220915001433

PATIENT
  Age: 59 Year
  Sex: Male

DRUGS (12)
  1. ISATUXIMAB [Suspect]
     Active Substance: ISATUXIMAB
     Indication: Minimal residual disease
     Dosage: UNK
     Dates: start: 20220712, end: 20220712
  2. ISATUXIMAB [Suspect]
     Active Substance: ISATUXIMAB
     Dosage: UNK
     Dates: start: 20220331, end: 20220331
  3. ISATUXIMAB [Suspect]
     Active Substance: ISATUXIMAB
     Dosage: UNK
     Dates: start: 20220622, end: 20220622
  4. CARFILZOMIB [Suspect]
     Active Substance: CARFILZOMIB
     Indication: Minimal residual disease
     Dosage: UNK
     Dates: start: 20220712, end: 20220712
  5. CARFILZOMIB [Suspect]
     Active Substance: CARFILZOMIB
     Dosage: UNK
     Dates: start: 20220331, end: 20220331
  6. CARFILZOMIB [Suspect]
     Active Substance: CARFILZOMIB
     Dosage: UNK
     Dates: start: 20220622, end: 20220622
  7. LENALIDOMIDE [Suspect]
     Active Substance: LENALIDOMIDE
     Indication: Minimal residual disease
     Dosage: UNK
     Dates: start: 20220712, end: 20220712
  8. LENALIDOMIDE [Suspect]
     Active Substance: LENALIDOMIDE
     Dosage: UNK
     Dates: start: 20220331, end: 20220331
  9. LENALIDOMIDE [Suspect]
     Active Substance: LENALIDOMIDE
     Dosage: UNK
     Dates: start: 20220622, end: 20220622
  10. DEXAMETHASONE [Suspect]
     Active Substance: DEXAMETHASONE
     Indication: Minimal residual disease
     Dosage: UNK
     Dates: start: 20220712, end: 20220712
  11. DEXAMETHASONE [Suspect]
     Active Substance: DEXAMETHASONE
     Dosage: UNK
     Dates: start: 20220331, end: 20220331
  12. DEXAMETHASONE [Suspect]
     Active Substance: DEXAMETHASONE
     Dosage: UNK
     Dates: start: 20220622, end: 20220622

REACTIONS (1)
  - Hypertension [Recovered/Resolved]

NARRATIVE: CASE EVENT DATE: 20220805
